FAERS Safety Report 17973347 (Version 1)
Quarter: 2020Q3

REPORT INFORMATION
  Report Type: Spontaneous
  Country: JP (occurrence: JP)
  Receive Date: 20200702
  Receipt Date: 20200702
  Transmission Date: 20201103
  Serious: Yes (Hospitalization, Other)
  Sender: FDA-Public Use
  Company Number: NVSJ2020JP003576

PATIENT
  Age: 79 Year
  Sex: Male
  Weight: 57 kg

DRUGS (4)
  1. AMARYL [Concomitant]
     Active Substance: GLIMEPIRIDE
     Indication: TYPE 2 DIABETES MELLITUS
     Dosage: 1 MG, QD
     Route: 048
  2. EQUMET [Suspect]
     Active Substance: METFORMIN HYDROCHLORIDE\VILDAGLIPTIN
     Indication: TYPE 2 DIABETES MELLITUS
     Dosage: 1 DF,METFORMIN HYDROCHLORIDE 500MG/ VILDAGLIPTIN 50MG,BID
     Route: 048
     Dates: end: 20200515
  3. BAYASPIRIN [Concomitant]
     Active Substance: ASPIRIN
     Indication: CEREBRAL INFARCTION
     Dosage: 100 MG
     Route: 048
  4. AMLODIN [Concomitant]
     Active Substance: AMLODIPINE BESYLATE
     Indication: HYPERTENSION
     Dosage: 5 MG, QD
     Route: 048
     Dates: end: 20200515

REACTIONS (6)
  - Rash [Unknown]
  - Eosinophilia [Unknown]
  - Pemphigoid [Recovering/Resolving]
  - Blister rupture [Unknown]
  - Erythema [Unknown]
  - Blister [Unknown]

NARRATIVE: CASE EVENT DATE: 201805
